FAERS Safety Report 19061389 (Version 1)
Quarter: 2021Q1

REPORT INFORMATION
  Report Type: Report from Study
  Country: NL (occurrence: NL)
  Receive Date: 20210325
  Receipt Date: 20210325
  Transmission Date: 20210420
  Serious: Yes (Death, Other)
  Sender: FDA-Public Use
  Company Number: NL-JAZZ-2019-NL-018501

PATIENT
  Age: 83 Year
  Sex: Female

DRUGS (2)
  1. XYREM [Suspect]
     Active Substance: SODIUM OXYBATE
     Indication: PRODUCT USED FOR UNKNOWN INDICATION
     Dosage: 4 GRAM,FIRST DOSE
     Route: 048
     Dates: start: 201001
  2. XYREM [Suspect]
     Active Substance: SODIUM OXYBATE
     Dosage: 3.75  GRAM,SECOND DOSE
     Route: 048
     Dates: start: 201001

REACTIONS (1)
  - Death [Fatal]

NARRATIVE: CASE EVENT DATE: 20200329
